FAERS Safety Report 18873773 (Version 1)
Quarter: 2021Q1

REPORT INFORMATION
  Report Type: Spontaneous
  Country: US (occurrence: US)
  Receive Date: 20210210
  Receipt Date: 20210210
  Transmission Date: 20210420
  Serious: No
  Sender: FDA-Public Use
  Company Number: US-SA-2021SA038546

PATIENT
  Age: 64 Year
  Sex: Female

DRUGS (1)
  1. DUPIXENT [Suspect]
     Active Substance: DUPILUMAB
     Indication: ASTHMA
     Dosage: UNK
     Route: 058
     Dates: start: 20201009, end: 202101

REACTIONS (4)
  - Injection site exfoliation [Unknown]
  - Injection site discolouration [Unknown]
  - Injection site bruising [Unknown]
  - Injection site rash [Unknown]

NARRATIVE: CASE EVENT DATE: 20201009
